FAERS Safety Report 4362140-5 (Version None)
Quarter: 2004Q2

REPORT INFORMATION
  Report Type: 
  Country: None (occurrence: None)
  Receive Date: 20040517
  Receipt Date: 20040504
  Transmission Date: 20050107
  Serious: Yes (Death)
  Sender: FDA-Public Use
  Company Number: 2004UW05867

PATIENT
  Age: 26 Year
  Sex: Male

DRUGS (8)
  1. DIPRIVAN [Suspect]
     Indication: SEDATION
     Dosage: 1000 MG/HR IV
     Route: 042
  2. RANITIDINE [Concomitant]
  3. PIPERACILLIN [Concomitant]
  4. VENTOLIN [Concomitant]
  5. MANNITOL [Concomitant]
  6. PHENYTOIN [Concomitant]
  7. PENTOBARBITAL CAP [Concomitant]
  8. ERYTHROMYCIN [Concomitant]

REACTIONS (10)
  - CIRCULATORY COLLAPSE [None]
  - ELECTROCARDIOGRAM ST-T CHANGE [None]
  - HEPATIC CONGESTION [None]
  - HYPOKALAEMIA [None]
  - HYPOMAGNESAEMIA [None]
  - HYPOPHOSPHATAEMIA [None]
  - HYPOTENSION [None]
  - METABOLIC ACIDOSIS [None]
  - PROPOFOL INFUSION SYNDROME [None]
  - VENTRICULAR ARRHYTHMIA [None]
